FAERS Safety Report 4668104-6 (Version None)
Quarter: 2005Q2

REPORT INFORMATION
  Report Type: 
  Country: None (occurrence: None)
  Receive Date: 20050521
  Receipt Date: 20050406
  Transmission Date: 20051028
  Serious: Yes (Other)
  Sender: FDA-Public Use
  Company Number: PHNU2005DE01557

PATIENT
  Sex: Female

DRUGS (3)
  1. AREDIA [Suspect]
     Dosage: UNK, QMO
     Dates: end: 20020101
  2. ZOMETA [Suspect]
     Dosage: UNK, QMO
     Dates: start: 20020725, end: 20030403
  3. BONDRONAT [Suspect]
     Dosage: UNK, QMO
     Dates: start: 20030101, end: 20050310

REACTIONS (3)
  - ASEPTIC NECROSIS BONE [None]
  - JAW DISORDER [None]
  - OSTEONECROSIS [None]
